FAERS Safety Report 18214910 (Version 1)
Quarter: 2020Q3

REPORT INFORMATION
  Report Type: Spontaneous
  Country: US (occurrence: US)
  Receive Date: 20200831
  Receipt Date: 20200831
  Transmission Date: 20201103
  Serious: No
  Sender: FDA-Public Use
  Company Number: US-SA-2020SA232666

PATIENT

DRUGS (1)
  1. NICODERM CQ [Suspect]
     Active Substance: NICOTINE

REACTIONS (3)
  - Application site irritation [Unknown]
  - Application site pain [Unknown]
  - Application site pruritus [Unknown]

NARRATIVE: CASE EVENT DATE: 202008
